FAERS Safety Report 10329844 (Version 2)
Quarter: 2014Q3

REPORT INFORMATION
  Report Type: Spontaneous
  Country: AU (occurrence: None)
  Receive Date: 20140717
  Receipt Date: 20140912
  Transmission Date: 20150326
  Serious: Yes (Hospitalization)
  Sender: FDA-Public Use
  Company Number: 2014-19944

PATIENT
  Age: 88 Year
  Sex: Female

DRUGS (6)
  1. PANAMAX (PARACETAMOL) [Concomitant]
  2. EYLEA [Suspect]
     Active Substance: AFLIBERCEPT
     Indication: AGE-RELATED MACULAR DEGENERATION
     Dosage: Q1MON
     Route: 031
     Dates: start: 20121221
  3. RENITEC (ENLAPRIL) [Concomitant]
  4. SOMAC (PANTOPRAZOLE SODIUM SESQUIHYDRATE) [Concomitant]
  5. CARTIA (ACETYLSALICYLIC ACID) [Concomitant]
     Active Substance: ASPIRIN
  6. TEMAZEPAM. [Concomitant]
     Active Substance: TEMAZEPAM

REACTIONS (5)
  - Fall [None]
  - Confusional state [None]
  - Joint dislocation [None]
  - Eye disorder [None]
  - Tendon rupture [None]

NARRATIVE: CASE EVENT DATE: 201312
